FAERS Safety Report 12647186 (Version 1)
Quarter: 2016Q3

REPORT INFORMATION
  Report Type: Spontaneous
  Country: US (occurrence: US)
  Receive Date: 20160812
  Receipt Date: 20160812
  Transmission Date: 20161109
  Serious: Yes (Hospitalization)
  Sender: FDA-Public Use
  Company Number: US-DRREDDYS-USA/USA/16/0082143

PATIENT
  Age: 85 Year
  Sex: Male

DRUGS (1)
  1. LEVOFLOXACIN TABLETS [Suspect]
     Active Substance: LEVOFLOXACIN
     Indication: PYELONEPHRITIS
     Route: 065

REACTIONS (11)
  - Hypoglycaemia [Recovered/Resolved]
  - Tachycardia [Unknown]
  - Platelet count decreased [Unknown]
  - Toxicity to various agents [Unknown]
  - Adrenal insufficiency [Unknown]
  - Blood alkaline phosphatase increased [Unknown]
  - Sepsis [Unknown]
  - Hyperhidrosis [Unknown]
  - Mental status changes [Unknown]
  - White blood cell count decreased [Unknown]
  - Lethargy [Unknown]
